FAERS Safety Report 11603449 (Version 1)
Quarter: 2015Q4

REPORT INFORMATION
  Report Type: Other
  Country: US (occurrence: US)
  Receive Date: 20151007
  Receipt Date: 20151007
  Transmission Date: 20160304
  Serious: Yes (Life-Threatening, Hospitalization)
  Sender: FDA-Public Use
  Company Number: US-JUBILANT GENERICS LIMITED-1042675

PATIENT
  Age: 15 Month
  Sex: Female

DRUGS (1)
  1. BUPROPION. [Suspect]
     Active Substance: BUPROPION

REACTIONS (10)
  - Accidental exposure to product by child [Recovered/Resolved]
  - Cardio-respiratory arrest [Recovered/Resolved]
  - Paresis [Recovered/Resolved]
  - Hepatic enzyme increased [Recovered/Resolved]
  - Blindness cortical [Unknown]
  - Status epilepticus [Recovered/Resolved]
  - Metabolic acidosis [Recovered/Resolved]
  - Partial seizures [Unknown]
  - Hypoxic-ischaemic encephalopathy [Unknown]
  - Accidental overdose [Recovered/Resolved]

NARRATIVE: CASE EVENT DATE: 20150921
